FAERS Safety Report 6491361-0 (Version None)
Quarter: 2009Q4

REPORT INFORMATION
  Report Type: 
  Country: None (occurrence: None)
  Receive Date: 20091207
  Receipt Date: 20091126
  Transmission Date: 20100525
  Serious: Yes (Other)
  Sender: FDA-Public Use
  Company Number: 2009AL007515

PATIENT
  Sex: Female

DRUGS (2)
  1. LIDOCAINE HYDROCHLORIDE 2% [Suspect]
     Indication: NASOENDOSCOPY
     Dosage: 5 PCT; NAS
     Route: 045
  2. PHENYLEPHRINE [Concomitant]

REACTIONS (1)
  - CONVULSION [None]
